FAERS Safety Report 7980320-4 (Version None)
Quarter: 2011Q4

REPORT INFORMATION
  Report Type: 
  Country: None (occurrence: None)
  Receive Date: 20111212
  Receipt Date: 20111206
  Transmission Date: 20120403
  Serious: No
  Sender: FDA-Public Use
  Company Number: 1000026049

PATIENT
  Age: 48 Year
  Sex: Female

DRUGS (1)
  1. LEXAPRO [Suspect]

REACTIONS (3)
  - ADVERSE EVENT [None]
  - COUGH [None]
  - SLEEP DISORDER [None]
